FAERS Safety Report 24274954 (Version 1)
Quarter: 2024Q3

REPORT INFORMATION
  Report Type: Report from Study
  Country: US (occurrence: US)
  Receive Date: 20240902
  Receipt Date: 20240902
  Transmission Date: 20241016
  Serious: No
  Sender: SANDOZ
  Company Number: US-SANDOZ-SDZ2024US076424

PATIENT
  Sex: Male

DRUGS (2)
  1. OMNITROPE [Suspect]
     Active Substance: SOMATROPIN
     Indication: Growth hormone deficiency
     Dosage: 4.5 MG, QD
     Route: 058
     Dates: start: 20240625, end: 20240630
  2. OMNITROPE [Suspect]
     Active Substance: SOMATROPIN
     Indication: Growth hormone deficiency
     Dosage: 4.5 MG, QD
     Route: 058
     Dates: start: 20240625, end: 20240630

REACTIONS (2)
  - Fear of injection [Unknown]
  - Nervousness [Unknown]
